FAERS Safety Report 9683555 (Version 4)
Quarter: 2013Q4

REPORT INFORMATION
  Report Type: Report from Study
  Country: DE (occurrence: DE)
  Receive Date: 20131112
  Receipt Date: 20131217
  Transmission Date: 20140711
  Serious: Yes (Death, Life-Threatening)
  Sender: FDA-Public Use
  Company Number: DE-TAKEDA-2013TUS002062

PATIENT
  Age: 86 Year
  Sex: Male
  Weight: 159.3 kg

DRUGS (13)
  1. PEGINESATIDE [Suspect]
     Indication: APLASIA PURE RED CELL
     Dosage: 0.1 ML, UNK
     Dates: end: 20131009
  2. RENVELA [Concomitant]
     Dosage: 800 MG, UNK
  3. DOXAZOSIN ABZ [Concomitant]
     Dosage: 2 MG, UNK
  4. TWYNSTA [Concomitant]
     Dosage: 40MG/5MG, UNK
  5. TORASEMID-1A PHARMA [Concomitant]
     Dosage: 50 MG, UNK
  6. VEROSPIRON [Concomitant]
     Dosage: 25 MG, UNK
  7. PRAVA BASICS [Concomitant]
     Dosage: 20 MG, UNK
  8. THYRONAJOD [Concomitant]
     Dosage: 75 MG, UNK
  9. GODAMED [Concomitant]
     Dosage: 100 TAH, UNK
  10. ADENURIC [Concomitant]
     Dosage: 80 MG, UNK
  11. RENAPHRO [Concomitant]
     Dosage: UNK
  12. RENAVIT [Concomitant]
     Dosage: UNK
  13. DEKRISTOL [Concomitant]
     Dosage: 20000 I.E

REACTIONS (1)
  - Sudden death [Fatal]
